FAERS Safety Report 15918817 (Version 4)
Quarter: 2019Q2

REPORT INFORMATION
  Report Type: Spontaneous
  Country: GB (occurrence: GB)
  Receive Date: 20190205
  Receipt Date: 20190410
  Transmission Date: 20190711
  Serious: Yes (Other)
  Sender: FDA-Public Use
  Company Number: GB-JNJFOC-20190139023

PATIENT
  Age: 53 Year
  Sex: Male

DRUGS (1)
  1. SIMPONI [Suspect]
     Active Substance: GOLIMUMAB
     Indication: ANKYLOSING SPONDYLITIS
     Route: 058

REACTIONS (6)
  - Ankylosing spondylitis [Unknown]
  - Product dose omission [Unknown]
  - Rheumatic disorder [Not Recovered/Not Resolved]
  - Neutrophil count decreased [Unknown]
  - Post procedural infection [Recovered/Resolved]
  - Haemorrhoids [Unknown]

NARRATIVE: CASE EVENT DATE: 2019
